FAERS Safety Report 6935350-8 (Version None)
Quarter: 2010Q3

REPORT INFORMATION
  Report Type: 
  Country: None (occurrence: None)
  Receive Date: 20100823
  Receipt Date: 20100527
  Transmission Date: 20110219
  Serious: Yes (Hospitalization)
  Sender: FDA-Public Use
  Company Number: US-ASTRAZENECA-2008UW19056

PATIENT
  Age: 51 Year
  Sex: Female
  Weight: 81.6 kg

DRUGS (14)
  1. SEROQUEL [Suspect]
     Indication: DEPRESSION
     Dosage: 100 TO 200 MG
     Route: 048
     Dates: start: 20030506, end: 20070416
  2. SEROQUEL [Suspect]
     Dosage: 200 MG-600MG
     Route: 048
     Dates: start: 20051010
  3. GEODON [Concomitant]
     Dates: start: 20070301, end: 20070401
  4. RISPERDAL [Concomitant]
     Dates: start: 20060801, end: 20070501
  5. ZYPREXA [Concomitant]
     Dosage: 10 MG-20 MG
     Dates: start: 20030101, end: 20030501
  6. LIPITOR [Concomitant]
     Route: 048
     Dates: start: 20051010
  7. ZOLOFT [Concomitant]
     Dosage: 150 MG TO 200 MG
     Route: 048
     Dates: start: 20051010
  8. RESTORIL [Concomitant]
     Dates: start: 20051010
  9. PREDNISONE [Concomitant]
     Dosage: TAPER OF 40 MG PO DAILY FOR FOUR DAYS,20 MG PO DAILY FOR FOUR DAYS AND THEN 10MG PO DAILY FOR 4DAYS
     Route: 048
     Dates: start: 20051010
  10. ATIVAN [Concomitant]
     Route: 048
     Dates: start: 20051010
  11. GLUCOPHAGE [Concomitant]
     Route: 048
     Dates: start: 20051010
  12. VANTIN [Concomitant]
     Route: 048
     Dates: start: 20051010
  13. GUAIFENESIN [Concomitant]
     Route: 048
     Dates: start: 20051010
  14. TRAZODONE HCL [Concomitant]
     Route: 048
     Dates: start: 20030325

REACTIONS (4)
  - BLOOD CHOLESTEROL INCREASED [None]
  - CHRONIC OBSTRUCTIVE PULMONARY DISEASE [None]
  - GALLBLADDER DISORDER [None]
  - TYPE 2 DIABETES MELLITUS [None]
